FAERS Safety Report 9494031 (Version 1)
Quarter: 2013Q3

REPORT INFORMATION
  Report Type: Spontaneous
  Country: US (occurrence: None)
  Receive Date: 20130829
  Receipt Date: 20130829
  Transmission Date: 20140515
  Serious: Yes (Other)
  Sender: FDA-Public Use
  Company Number: None

PATIENT
  Age: 54 Year
  Sex: Female

DRUGS (1)
  1. ENBREL SURECLICK [Suspect]
     Indication: SPONDYLOARTHROPATHY
     Dosage: 50MG EVERY WEEK SUBQ
     Route: 058
     Dates: start: 20130610, end: 20130827

REACTIONS (4)
  - Injection site erythema [None]
  - Injection site warmth [None]
  - Injection site swelling [None]
  - Drug hypersensitivity [None]
